FAERS Safety Report 15154321 (Version 6)
Quarter: 2018Q4

REPORT INFORMATION
  Report Type: Spontaneous
  Country: IE (occurrence: IE)
  Receive Date: 20180717
  Receipt Date: 20181026
  Transmission Date: 20190204
  Serious: Yes (Death)
  Sender: FDA-Public Use
  Company Number: IE-PFIZER INC-2018285051

PATIENT
  Age: 74 Year
  Sex: Female

DRUGS (4)
  1. LYRICA [Suspect]
     Active Substance: PREGABALIN
     Dosage: UNK
  2. QUETIAPINE FUMARATE. [Interacting]
     Active Substance: QUETIAPINE FUMARATE
     Dosage: UNK
     Route: 048
  3. XANAX [Interacting]
     Active Substance: ALPRAZOLAM
     Dosage: UNK
  4. MIRTAZAPINE. [Interacting]
     Active Substance: MIRTAZAPINE
     Dosage: UNK
     Route: 048

REACTIONS (2)
  - Alcohol interaction [Fatal]
  - Toxicity to various agents [Fatal]

NARRATIVE: CASE EVENT DATE: 20161209
